FAERS Safety Report 8990097 (Version 3)
Quarter: 2013Q3

REPORT INFORMATION
  Report Type: Spontaneous
  Country: FR (occurrence: FR)
  Receive Date: 20121228
  Receipt Date: 20130801
  Transmission Date: 20140515
  Serious: Yes (Hospitalization, Other)
  Sender: FDA-Public Use
  Company Number: FR-ABBOTT-12P-056-1027108-00

PATIENT
  Age: 44 Year
  Sex: Male
  Weight: 64.01 kg

DRUGS (14)
  1. NORVIR [Suspect]
     Indication: HIV INFECTION
     Dates: start: 20120705, end: 20120709
  2. NORVIR [Suspect]
     Dates: start: 20130730
  3. TRUVADA [Suspect]
     Indication: HIV INFECTION
     Dosage: 200MG/245MG
     Route: 048
     Dates: start: 20120705, end: 20120710
  4. TRUVADA [Suspect]
     Dosage: DOUBLE DOSE
     Dates: start: 20120713, end: 20120717
  5. REYATAZ [Suspect]
     Indication: HIV INFECTION
     Dates: start: 20120705, end: 20120707
  6. CELSENTRI [Suspect]
     Indication: HIV INFECTION
     Dosage: MORNING
     Dates: start: 20120705, end: 20120707
  7. CELSENTRI [Suspect]
     Indication: PROPHYLAXIS
     Dates: start: 20120713, end: 20120717
  8. MALOCIDE [Suspect]
     Indication: TOXOPLASMOSIS PROPHYLAXIS
     Dates: start: 20120701, end: 20120717
  9. LEDERFOLINE [Suspect]
     Indication: PRODUCT USED FOR UNKNOWN INDICATION
     Dates: start: 20120705
  10. LEDERFOLINE [Suspect]
     Indication: PROPHYLAXIS
  11. ISENTRESS [Suspect]
     Indication: HIV INFECTION
     Dates: start: 20120713, end: 20120717
  12. PENTACARINAT [Suspect]
     Indication: PRODUCT USED FOR UNKNOWN INDICATION
     Dates: start: 20120623, end: 20120717
  13. PENTASA [Concomitant]
     Indication: COLITIS ULCERATIVE
     Dosage: MORNING AND IN THE EVENING
  14. PENTASA [Concomitant]
     Indication: COLITIS

REACTIONS (29)
  - Prurigo [Recovering/Resolving]
  - Rash [Recovering/Resolving]
  - Rash generalised [Recovering/Resolving]
  - Pancytopenia [Recovering/Resolving]
  - Jaundice [Recovered/Resolved]
  - Epidermal necrosis [Unknown]
  - Toxic skin eruption [Recovering/Resolving]
  - Pruritus [Recovering/Resolving]
  - Diarrhoea [Recovered/Resolved]
  - Nausea [Recovered/Resolved]
  - Asthenia [Recovering/Resolving]
  - Decreased appetite [Recovering/Resolving]
  - Gastrointestinal disorder [Recovering/Resolving]
  - Macule [Unknown]
  - Genital lesion [Unknown]
  - Giardiasis [Unknown]
  - Aphthous stomatitis [Unknown]
  - Tachycardia [Unknown]
  - Pyrexia [Unknown]
  - Cough [Unknown]
  - Dermatitis exfoliative [Unknown]
  - Fatigue [Unknown]
  - Seborrhoeic dermatitis [Unknown]
  - Hyperbilirubinaemia [Unknown]
  - Skin exfoliation [Unknown]
  - Enanthema [Recovering/Resolving]
  - Blood pressure decreased [Unknown]
  - Hyponatraemia [Unknown]
  - Vitamin B12 deficiency [Unknown]
